FAERS Safety Report 7738935-4 (Version None)
Quarter: 2011Q3

REPORT INFORMATION
  Report Type: 
  Country: None (occurrence: None)
  Receive Date: 20110909
  Receipt Date: 20110830
  Transmission Date: 20111222
  Serious: No
  Sender: FDA-Public Use
  Company Number: US-BIOGENIDEC-2011BI016176

PATIENT
  Age: 34 Year
  Sex: Male

DRUGS (1)
  1. TYSABRI [Suspect]
     Indication: MULTIPLE SCLEROSIS
     Route: 042
     Dates: start: 20100506

REACTIONS (6)
  - HEPATIC ENZYME INCREASED [None]
  - SOMNOLENCE [None]
  - FATIGUE [None]
  - HEADACHE [None]
  - ASPARTATE AMINOTRANSFERASE ABNORMAL [None]
  - TINNITUS [None]
